FAERS Safety Report 9634104 (Version 1)
Quarter: 2013Q4

REPORT INFORMATION
  Report Type: Spontaneous
  Country: US (occurrence: US)
  Receive Date: 20131021
  Receipt Date: 20131021
  Transmission Date: 20140711
  Serious: Yes (Other)
  Sender: FDA-Public Use
  Company Number: US-PFIZER INC-2013295120

PATIENT
  Age: 45 Year
  Sex: Female
  Weight: 99.77 kg

DRUGS (8)
  1. LYRICA [Suspect]
     Indication: MULTIPLE SCLEROSIS
     Dosage: 300 MG, ALTERNATE DAY
     Route: 048
     Dates: start: 201303, end: 201308
  2. LYRICA [Suspect]
     Indication: PAIN
     Dosage: 300 MG, ALTERNATE DAY
     Route: 048
     Dates: start: 201310
  3. BACLOFEN [Concomitant]
     Indication: MUSCLE SPASTICITY
     Dosage: UNK
  4. TIZANIDINE [Concomitant]
     Indication: MUSCLE SPASTICITY
     Dosage: UNK
  5. AVONEX [Concomitant]
     Indication: MULTIPLE SCLEROSIS
     Dosage: UNK
  6. AMPYRA [Concomitant]
     Indication: MULTIPLE SCLEROSIS
     Dosage: UNK
  7. AMPYRA [Concomitant]
     Indication: GAIT DISTURBANCE
  8. EFEXOR XR [Concomitant]
     Indication: ANXIETY
     Dosage: UNK

REACTIONS (2)
  - Off label use [Unknown]
  - Thrombosis [Unknown]
